FAERS Safety Report 4975032-5 (Version None)
Quarter: 2006Q2

REPORT INFORMATION
  Report Type: 
  Country: None (occurrence: None)
  Receive Date: 20060414
  Receipt Date: 20060414
  Transmission Date: 20061013
  Serious: Yes (Hospitalization)
  Sender: FDA-Public Use
  Company Number: None

PATIENT
  Age: 47 Year
  Sex: Male
  Weight: 56.6996 kg

DRUGS (3)
  1. DOXORUBICIN    50MG [Suspect]
     Indication: NON-HODGKIN'S LYMPHOMA
     Dosage: 80 MG   X 1    IV
     Route: 042
     Dates: start: 20060328, end: 20060328
  2. RITUXIMAB    100MG [Suspect]
     Indication: NON-HODGKIN'S LYMPHOMA
     Dosage: 590 MG  X1   IV
     Route: 042
     Dates: start: 20060328, end: 20060328
  3. CYCLOPHOSPHAMIDE [Concomitant]

REACTIONS (3)
  - NAUSEA [None]
  - NEUTROPENIA [None]
  - VOMITING [None]
